FAERS Safety Report 21253736 (Version 1)
Quarter: 2022Q3

REPORT INFORMATION
  Report Type: Spontaneous
  Country: US (occurrence: US)
  Receive Date: 20220825
  Receipt Date: 20220825
  Transmission Date: 20221027
  Serious: No
  Sender: FDA-Public Use
  Company Number: US-AMRYT PHARMACEUTICALS DAC-AEGR005266

PATIENT
  Sex: Male
  Weight: 26.259 kg

DRUGS (4)
  1. JUXTAPID [Suspect]
     Active Substance: LOMITAPIDE MESYLATE
     Indication: Type IIa hyperlipidaemia
     Dosage: 5 MILLIGRAM, QD HS
     Dates: start: 20171115
  2. ZETIA [Concomitant]
     Active Substance: EZETIMIBE
     Indication: Product used for unknown indication
  3. CRESTOR [Concomitant]
     Active Substance: ROSUVASTATIN CALCIUM
     Indication: Product used for unknown indication
  4. EVINACUMAB [Concomitant]
     Active Substance: EVINACUMAB
     Indication: Product used for unknown indication

REACTIONS (4)
  - Intentional product use issue [Unknown]
  - Off label use [Unknown]
  - Laboratory test abnormal [Unknown]
  - Gastric disorder [Unknown]
